FAERS Safety Report 5808834-3 (Version None)
Quarter: 2008Q3

REPORT INFORMATION
  Report Type: 
  Country: None (occurrence: None)
  Receive Date: 20080714
  Receipt Date: 20080707
  Transmission Date: 20090109
  Serious: Yes (Other)
  Sender: FDA-Public Use
  Company Number: B0529050A

PATIENT
  Age: 81 Year
  Sex: Male

DRUGS (4)
  1. BUPROPION HCL [Suspect]
     Dosage: 11.25MG PER DAY
     Route: 065
     Dates: start: 20071001
  2. MIRTAZAPINE [Concomitant]
     Dosage: 45MG PER DAY
     Route: 065
     Dates: start: 20060101
  3. CHEMOTHERAPY [Concomitant]
     Route: 065
  4. RADIOTHERAPY [Concomitant]
     Route: 065

REACTIONS (20)
  - AGITATION [None]
  - ANHEDONIA [None]
  - CEREBRAL ATROPHY [None]
  - CONSCIOUSNESS FLUCTUATING [None]
  - DECREASED ACTIVITY [None]
  - DECREASED APPETITE [None]
  - DELIRIUM [None]
  - DEPRESSED MOOD [None]
  - DISORIENTATION [None]
  - DISTURBANCE IN ATTENTION [None]
  - FATIGUE [None]
  - HALLUCINATION, VISUAL [None]
  - HYPOMAGNESAEMIA [None]
  - HYPONATRAEMIA [None]
  - HYPOPHOSPHATAEMIA [None]
  - INSOMNIA [None]
  - LEUKOARAIOSIS [None]
  - LOGORRHOEA [None]
  - NERVOUS SYSTEM DISORDER [None]
  - PARANOIA [None]
